FAERS Safety Report 6679324-3 (Version None)
Quarter: 2010Q2

REPORT INFORMATION
  Report Type: 
  Country: None (occurrence: None)
  Receive Date: 20100413
  Receipt Date: 20100401
  Transmission Date: 20101027
  Serious: Yes (Hospitalization)
  Sender: FDA-Public Use
  Company Number: DE-ELI_LILLY_AND_COMPANY-DE201004000096

PATIENT
  Sex: Female

DRUGS (2)
  1. GEMCITABINE HCL [Suspect]
     Indication: BILE DUCT CANCER
     Dosage: 750 MG/M2, WEEKLY (1/W)
     Route: 042
     Dates: start: 20100129
  2. SORAFENIB [Suspect]
     Indication: BILE DUCT CANCER
     Dosage: 400 MG, 2/D
     Route: 048
     Dates: start: 20100129

REACTIONS (1)
  - RESPIRATORY TRACT INFECTION [None]
